FAERS Safety Report 9105978 (Version 2)
Quarter: 2013Q1

REPORT INFORMATION
  Report Type: Report from Study
  Country: US (occurrence: US)
  Receive Date: 20130220
  Receipt Date: 20130318
  Transmission Date: 20140127
  Serious: Yes (Other)
  Sender: FDA-Public Use
  Company Number: US-US-EMD SERONO, INC.-7193434

PATIENT
  Sex: Female
  Weight: 73 kg

DRUGS (2)
  1. REBIF [Suspect]
     Indication: MULTIPLE SCLEROSIS
     Route: 058
     Dates: start: 20100308
  2. INDERAL XR [Concomitant]
     Indication: HYPERTENSION

REACTIONS (3)
  - Cataract [Not Recovered/Not Resolved]
  - Benign breast neoplasm [Unknown]
  - Arthralgia [Not Recovered/Not Resolved]
